FAERS Safety Report 23920617 (Version 6)
Quarter: 2024Q4

REPORT INFORMATION
  Report Type: Spontaneous
  Country: US (occurrence: US)
  Receive Date: 20240530
  Receipt Date: 20241230
  Transmission Date: 20250115
  Serious: Yes (Hospitalization)
  Sender: JOHNSON AND JOHNSON
  Company Number: US-JNJFOC-20240560599

PATIENT
  Age: 15 Year
  Sex: Male

DRUGS (5)
  1. INVEGA SUSTENNA [Suspect]
     Active Substance: PALIPERIDONE PALMITATE
     Indication: Schizophrenia
     Dosage: RECENT DOSE WAS ON 28/JUL/2024
     Route: 030
     Dates: start: 201802, end: 20241130
  2. INVEGA SUSTENNA [Suspect]
     Active Substance: PALIPERIDONE PALMITATE
     Indication: Psychotic disorder
     Route: 030
     Dates: start: 2022
  3. INVEGA SUSTENNA [Suspect]
     Active Substance: PALIPERIDONE PALMITATE
     Route: 030
     Dates: start: 2022
  4. INVEGA SUSTENNA [Suspect]
     Active Substance: PALIPERIDONE PALMITATE
     Dosage: LAST ADMINISTERED DOSE /FEB/2024, 117 MG 28 DAYS
     Route: 030
     Dates: start: 202208
  5. INVEGA [Suspect]
     Active Substance: PALIPERIDONE
     Indication: Psychotic disorder
     Dosage: ONGOING
     Route: 048
     Dates: start: 202402

REACTIONS (10)
  - Brain injury [Unknown]
  - Confusional state [Unknown]
  - Depression [Unknown]
  - Off label use [Unknown]
  - Gynaecomastia [Unknown]
  - Mental status changes [Unknown]
  - Abnormal behaviour [Unknown]
  - Hostility [Unknown]
  - Alopecia [Unknown]
  - Amnesia [Unknown]

NARRATIVE: CASE EVENT DATE: 20180201
